FAERS Safety Report 8834198 (Version 1)
Quarter: 2012Q4

REPORT INFORMATION
  Report Type: 
  Country: CA (occurrence: CA)
  Receive Date: 20121010
  Receipt Date: 20121010
  Transmission Date: 20130627
  Serious: Yes (Death)
  Sender: FDA-Public Use
  Company Number: CA-MERCK-1210CAN004700

PATIENT
  Age: 49 Year
  Sex: Male

DRUGS (1)
  1. ISENTRESS [Suspect]
     Indication: HIV INFECTION
     Dosage: 800 mg, qd
     Route: 048

REACTIONS (1)
  - General physical health deterioration [Fatal]
